FAERS Safety Report 25207256 (Version 1)
Quarter: 2025Q2

REPORT INFORMATION
  Report Type: Spontaneous
  Country: US (occurrence: None)
  Receive Date: 20250416
  Receipt Date: 20250416
  Transmission Date: 20250716
  Serious: Yes (Hospitalization, Disabling, Other)
  Sender: FDA-CTU
  Company Number: None

PATIENT
  Age: 48 Year
  Sex: Female

DRUGS (11)
  1. COLLAGENASE SANTYL [Suspect]
     Active Substance: COLLAGENASE CLOSTRIDIUM HISTOLYTICUM
     Indication: Wound
     Dosage: COVER WOUND DAILY  TOPICAL? ?
     Route: 061
     Dates: end: 20250409
  2. ALBUTEROL [Concomitant]
     Active Substance: ALBUTEROL
  3. AUGMENTIN [Concomitant]
     Active Substance: AMOXICILLIN\CLAVULANATE POTASSIUM
  4. AMOXIL [Concomitant]
     Active Substance: AMOXICILLIN
  5. ASPERFLEX LIDOCAINE [Concomitant]
  6. AZITHROMYCIN [Concomitant]
     Active Substance: AZITHROMYCIN
  7. BUSPIRONE [Concomitant]
     Active Substance: BUSPIRONE HYDROCHLORIDE
  8. CHLO HIST SOLUTION [Concomitant]
  9. CILOSTAZOL [Concomitant]
     Active Substance: CILOSTAZOL
  10. DOXYCYCLINE [Concomitant]
     Active Substance: DOXYCYCLINE
  11. DULOXETINE [Concomitant]
     Active Substance: DULOXETINE

REACTIONS (2)
  - Toe amputation [None]
  - Bacterial infection [None]

NARRATIVE: CASE EVENT DATE: 20250409
